FAERS Safety Report 11005061 (Version 2)
Quarter: 2015Q2

REPORT INFORMATION
  Report Type: Report from Study
  Country: US (occurrence: US)
  Receive Date: 20150409
  Receipt Date: 20150420
  Transmission Date: 20150821
  Serious: Yes (Hospitalization)
  Sender: FDA-Public Use
  Company Number: US-SA-2014SA050361

PATIENT
  Age: 64 Year
  Sex: Female

DRUGS (2)
  1. AUBAGIO [Suspect]
     Active Substance: TERIFLUNOMIDE
     Indication: MULTIPLE SCLEROSIS
     Route: 048
     Dates: start: 20150406
  2. AUBAGIO [Suspect]
     Active Substance: TERIFLUNOMIDE
     Indication: MULTIPLE SCLEROSIS
     Route: 048
     Dates: start: 20140225, end: 20150101

REACTIONS (9)
  - Dyspepsia [Unknown]
  - Multiple sclerosis relapse [Unknown]
  - Condition aggravated [Recovering/Resolving]
  - Drug dose omission [Unknown]
  - Asthma [Recovering/Resolving]
  - Muscle strain [Unknown]
  - Bronchitis [Recovering/Resolving]
  - Alopecia [Unknown]
  - Cough [Recovering/Resolving]

NARRATIVE: CASE EVENT DATE: 20140411
